FAERS Safety Report 7678431-6 (Version None)
Quarter: 2011Q3

REPORT INFORMATION
  Report Type: 
  Country: None (occurrence: None)
  Receive Date: 20110811
  Receipt Date: 20110730
  Transmission Date: 20111222
  Serious: No
  Sender: FDA-Public Use
  Company Number: US-B.I. PHARMACEUTICALS,INC./RIDGEFIELD-2011-BP-18830BP

PATIENT
  Sex: Female

DRUGS (7)
  1. TOPROL-XL [Concomitant]
     Indication: ATRIAL FIBRILLATION
     Dosage: 100 MG
     Route: 048
  2. PRADAXA [Suspect]
     Indication: ATRIAL FIBRILLATION
     Dosage: 300 MG
     Route: 048
     Dates: start: 20110501
  3. ZETIA [Concomitant]
     Indication: BLOOD CHOLESTEROL
     Dosage: 10 MG
     Route: 048
     Dates: start: 20050101
  4. ZOLOFT [Concomitant]
     Indication: DEPRESSION
     Dosage: 50 MG
     Route: 048
     Dates: start: 20000101
  5. ENALAPRIL MALEATE [Concomitant]
     Indication: HYPERTENSION
     Dosage: 20 MG
     Route: 048
  6. LIPITOR [Concomitant]
     Indication: BLOOD CHOLESTEROL
     Dosage: 40 MG
     Route: 048
     Dates: start: 19960101
  7. TYLENOL-500 [Concomitant]
     Indication: ARTHRITIS
     Dosage: 1000 MG
     Route: 048

REACTIONS (2)
  - DYSPEPSIA [None]
  - HERPES ZOSTER [None]
